FAERS Safety Report 5057870-6 (Version None)
Quarter: 2006Q3

REPORT INFORMATION
  Report Type: 
  Country: None (occurrence: None)
  Receive Date: 20060721
  Receipt Date: 20060320
  Transmission Date: 20061208
  Serious: No
  Sender: FDA-Public Use
  Company Number: US-GLAXOSMITHKLINE-A0598209A

PATIENT
  Age: 50 Year
  Sex: Male

DRUGS (8)
  1. AVANDIA [Suspect]
     Dosage: 2MG TWICE PER DAY
     Route: 048
  2. METFORMIN [Suspect]
     Dosage: 500MG TWICE PER DAY
  3. PLAVIX [Concomitant]
  4. COZAAR [Concomitant]
  5. LIPITOR [Concomitant]
  6. NORVASC [Concomitant]
  7. ZETIA [Concomitant]
  8. LOPRESSOR [Concomitant]

REACTIONS (2)
  - DRUG INEFFECTIVE [None]
  - OEDEMA [None]
